FAERS Safety Report 22298824 (Version 1)
Quarter: 2023Q2

REPORT INFORMATION
  Report Type: Spontaneous
  Country: US (occurrence: None)
  Receive Date: 20230508
  Receipt Date: 20230508
  Transmission Date: 20230722
  Serious: No
  Sender: FDA-Public Use
  Company Number: None

PATIENT
  Age: 75 Year
  Sex: Female

DRUGS (1)
  1. AMBRISENTAN [Suspect]
     Active Substance: AMBRISENTAN
     Dosage: 5MG DAILY ORAL
     Route: 048

REACTIONS (2)
  - Pulmonary oedema [None]
  - Dialysis [None]

NARRATIVE: CASE EVENT DATE: 20230508
